FAERS Safety Report 8591363-4 (Version None)
Quarter: 2012Q3

REPORT INFORMATION
  Report Type: 
  Country: None (occurrence: None)
  Receive Date: 20120730
  Receipt Date: 20120712
  Transmission Date: 20120928
  Serious: Yes (Hospitalization)
  Sender: FDA-Public Use
  Company Number: 28101

PATIENT
  Sex: Male
  Weight: 109.7705 kg

DRUGS (35)
  1. GLASSIA [Suspect]
  2. GLASSIA [Suspect]
  3. GLASSIA [Suspect]
  4. ALDACTONE [Concomitant]
  5. LACTULOSE [Concomitant]
  6. HYDROCHLOROTHIAZIDE [Concomitant]
  7. GLASSIA [Suspect]
  8. GLASSIA [Suspect]
  9. OXYCONTIN [Concomitant]
  10. ROXICONDE [Concomitant]
  11. BURTRANS PATCH [Concomitant]
  12. KEPPRA [Concomitant]
  13. CORGARD [Concomitant]
  14. MEPHYTON [Concomitant]
  15. PRILOSEC [Concomitant]
  16. VENTOLIN HFA [Concomitant]
  17. EPINEPHRINE [Concomitant]
  18. GLASSIA [Suspect]
     Indication: ALPHA-1 ANTI-TRYPSIN DEFICIENCY
     Dosage: 8400MG, WEEKLY, IV
     Route: 042
     Dates: start: 20110429
  19. ALBUTEROL SULFATE [Concomitant]
  20. XIFAXAN [Concomitant]
  21. ESOMEPRAZOLE SODIUM [Concomitant]
  22. SONATA [Concomitant]
  23. ZOFRAN [Concomitant]
  24. VALIUM [Concomitant]
  25. XANAX [Concomitant]
  26. ADVAIR DISKUS 100/50 [Concomitant]
  27. BACLOFEN [Concomitant]
  28. VASOTEC [Concomitant]
  29. NEXIUM [Concomitant]
  30. XANAX [Concomitant]
  31. GLASSIA [Suspect]
  32. GLASSIA [Suspect]
  33. DIAZEPAM [Concomitant]
  34. NEURONTIN [Concomitant]
  35. OXYCODONE HCL [Concomitant]

REACTIONS (9)
  - LUNG INFILTRATION [None]
  - BACTERAEMIA [None]
  - AMMONIA INCREASED [None]
  - VIRAL INFECTION [None]
  - CYSTITIS [None]
  - DYSPNOEA [None]
  - PYREXIA [None]
  - VOMITING [None]
  - PLEURAL EFFUSION [None]
